FAERS Safety Report 6647703-6 (Version None)
Quarter: 2010Q1

REPORT INFORMATION
  Report Type: 
  Country: None (occurrence: None)
  Receive Date: 20100323
  Receipt Date: 20100316
  Transmission Date: 20100710
  Serious: Yes (Hospitalization)
  Sender: FDA-Public Use
  Company Number: FR-BRISTOL-MYERS SQUIBB COMPANY-15022957

PATIENT
  Age: 47 Year
  Sex: Female

DRUGS (3)
  1. IRBESARTAN [Suspect]
     Route: 048
     Dates: start: 20100201, end: 20100226
  2. LODOZ [Suspect]
     Route: 048
     Dates: start: 20100128, end: 20100226
  3. KERLONE [Suspect]
     Route: 048
     Dates: start: 20100226, end: 20100304

REACTIONS (3)
  - OEDEMA PERIPHERAL [None]
  - SEGMENTED HYALINISING VASCULITIS [None]
  - URTICARIA [None]
